FAERS Safety Report 6489500-0 (Version None)
Quarter: 2009Q4

REPORT INFORMATION
  Report Type: 
  Country: None (occurrence: None)
  Receive Date: 20091210
  Receipt Date: 20091118
  Transmission Date: 20100525
  Serious: Yes (Hospitalization)
  Sender: FDA-Public Use
  Company Number: US-SANOFI-AVENTIS-F03200900117

PATIENT
  Age: 73 Year
  Sex: Male
  Weight: 68 kg

DRUGS (9)
  1. OXALIPLATIN [Suspect]
     Route: 042
     Dates: start: 20090811, end: 20090811
  2. OXALIPLATIN [Suspect]
     Route: 042
     Dates: start: 20090501, end: 20090501
  3. PEMETREXED [Suspect]
     Route: 042
     Dates: start: 20090811, end: 20090811
  4. FOLIC ACID [Concomitant]
     Indication: DRUG USE FOR UNKNOWN INDICATION
     Route: 065
  5. VITAMIN B-12 [Concomitant]
     Indication: DRUG USE FOR UNKNOWN INDICATION
     Route: 065
  6. DECADRON #1 [Concomitant]
     Route: 065
  7. COUMADIN [Concomitant]
     Route: 065
  8. POTASSIUM [Concomitant]
     Route: 065
  9. LASIX [Concomitant]
     Route: 065

REACTIONS (4)
  - CHEST PAIN [None]
  - DYSPNOEA [None]
  - MYOCARDIAL INFARCTION [None]
  - PLEURAL EFFUSION [None]
